FAERS Safety Report 17429473 (Version 2)
Quarter: 2020Q1

REPORT INFORMATION
  Report Type: Report from Study
  Country: JP (occurrence: JP)
  Receive Date: 20200218
  Receipt Date: 20200221
  Transmission Date: 20200409
  Serious: Yes (Other)
  Sender: FDA-Public Use
  Company Number: JP-BAUSCH-BL-2020-005090

PATIENT
  Age: 77 Year
  Sex: Male
  Weight: 54 kg

DRUGS (48)
  1. FLUOROURACIL. [Suspect]
     Active Substance: FLUOROURACIL
     Dosage: ONCE
     Route: 040
     Dates: start: 20190227, end: 20190227
  2. FLUOROURACIL. [Suspect]
     Active Substance: FLUOROURACIL
     Dosage: ONCE
     Route: 040
     Dates: start: 20190808, end: 20190808
  3. FLUOROURACIL. [Suspect]
     Active Substance: FLUOROURACIL
     Dosage: ONCE
     Route: 040
     Dates: start: 20191017, end: 20191017
  4. ZALTRAP [Suspect]
     Active Substance: ZIV-AFLIBERCEPT
     Dosage: ONCE
     Route: 041
     Dates: start: 20190704, end: 20190704
  5. FLUOROURACIL. [Suspect]
     Active Substance: FLUOROURACIL
     Dosage: ONCE
     Route: 041
     Dates: start: 20190529, end: 20190529
  6. CALCIUM FOLINATE [Suspect]
     Active Substance: LEUCOVORIN CALCIUM
     Dosage: ONCE
     Route: 065
     Dates: start: 20190808, end: 20190808
  7. FLUOROURACIL. [Suspect]
     Active Substance: FLUOROURACIL
     Dosage: ONCE
     Route: 041
     Dates: start: 20190320, end: 20190320
  8. FLUOROURACIL. [Suspect]
     Active Substance: FLUOROURACIL
     Dosage: ONCE
     Route: 041
     Dates: start: 20190704, end: 20190704
  9. CALCIUM FOLINATE [Suspect]
     Active Substance: LEUCOVORIN CALCIUM
     Dosage: ONCE
     Route: 065
     Dates: start: 20190424, end: 20190424
  10. ZALTRAP [Suspect]
     Active Substance: ZIV-AFLIBERCEPT
     Dosage: ONCE
     Route: 041
     Dates: start: 20190227, end: 20190227
  11. FLUOROURACIL. [Suspect]
     Active Substance: FLUOROURACIL
     Dosage: ONCE
     Route: 041
     Dates: start: 20190905, end: 20190905
  12. IRINOTECAN [Suspect]
     Active Substance: IRINOTECAN
     Dosage: ONCE
     Route: 065
     Dates: start: 20190424, end: 20190424
  13. IRINOTECAN [Suspect]
     Active Substance: IRINOTECAN
     Dosage: ONCE
     Route: 065
     Dates: start: 20190529, end: 20190529
  14. IRINOTECAN [Suspect]
     Active Substance: IRINOTECAN
     Dosage: ONCE
     Route: 065
     Dates: start: 20191017, end: 20191017
  15. IRINOTECAN [Suspect]
     Active Substance: IRINOTECAN
     Route: 065
  16. ZALTRAP [Suspect]
     Active Substance: ZIV-AFLIBERCEPT
     Dosage: ONCE
     Route: 041
     Dates: start: 20190529, end: 20190529
  17. ZALTRAP [Suspect]
     Active Substance: ZIV-AFLIBERCEPT
     Dosage: ONCE
     Route: 041
     Dates: start: 20190905, end: 20190905
  18. FLUOROURACIL. [Suspect]
     Active Substance: FLUOROURACIL
     Indication: RECTAL CANCER
     Dosage: ONCE
     Route: 040
     Dates: start: 20190320, end: 20190320
  19. FLUOROURACIL. [Suspect]
     Active Substance: FLUOROURACIL
     Dosage: ONCE
     Route: 040
     Dates: start: 20190123, end: 20190123
  20. FLUOROURACIL. [Suspect]
     Active Substance: FLUOROURACIL
     Dosage: ONCE
     Route: 041
     Dates: start: 20190808, end: 20190808
  21. FLUOROURACIL. [Suspect]
     Active Substance: FLUOROURACIL
     Dosage: ONCE
     Route: 041
     Dates: start: 20191017, end: 20191017
  22. IRINOTECAN [Suspect]
     Active Substance: IRINOTECAN
     Indication: RECTAL CANCER
     Dosage: ONCE
     Route: 065
     Dates: start: 20190320, end: 20190320
  23. IRINOTECAN [Suspect]
     Active Substance: IRINOTECAN
     Dosage: ONCE
     Route: 065
     Dates: start: 20190704, end: 20190704
  24. CALCIUM FOLINATE [Suspect]
     Active Substance: LEUCOVORIN CALCIUM
     Indication: RECTAL CANCER
     Dosage: ONCE
     Route: 065
     Dates: start: 20190320, end: 20190320
  25. CALCIUM FOLINATE [Suspect]
     Active Substance: LEUCOVORIN CALCIUM
     Dosage: ONCE
     Route: 065
     Dates: start: 20191017, end: 20191017
  26. ZALTRAP [Suspect]
     Active Substance: ZIV-AFLIBERCEPT
     Dosage: ONCE
     Route: 041
     Dates: start: 20190424, end: 20190424
  27. ZALTRAP [Suspect]
     Active Substance: ZIV-AFLIBERCEPT
     Dosage: ONCE
     Route: 041
     Dates: start: 20191017, end: 20191017
  28. FLUOROURACIL. [Suspect]
     Active Substance: FLUOROURACIL
     Dosage: ONCE
     Route: 040
     Dates: start: 20190424, end: 20190424
  29. FLUOROURACIL. [Suspect]
     Active Substance: FLUOROURACIL
     Dosage: ONCE
     Route: 040
     Dates: start: 20190704, end: 20190704
  30. IRINOTECAN [Suspect]
     Active Substance: IRINOTECAN
     Dosage: ONCE
     Route: 065
     Dates: start: 20190808, end: 20190808
  31. CALCIUM FOLINATE [Suspect]
     Active Substance: LEUCOVORIN CALCIUM
     Dosage: ONCE
     Route: 065
     Dates: start: 20190227, end: 20190227
  32. CALCIUM FOLINATE [Suspect]
     Active Substance: LEUCOVORIN CALCIUM
     Dosage: ONCE
     Route: 065
     Dates: start: 20190529, end: 20190529
  33. ZALTRAP [Suspect]
     Active Substance: ZIV-AFLIBERCEPT
     Indication: RECTAL CANCER
     Dosage: ONCE
     Route: 041
     Dates: start: 20190320, end: 20190320
  34. FLUOROURACIL. [Suspect]
     Active Substance: FLUOROURACIL
     Indication: RECTAL CANCER
     Route: 065
  35. FLUOROURACIL. [Suspect]
     Active Substance: FLUOROURACIL
     Dosage: ONCE
     Route: 041
     Dates: start: 20190424, end: 20190424
  36. IRINOTECAN [Suspect]
     Active Substance: IRINOTECAN
     Dosage: ONCE
     Route: 065
     Dates: start: 20190123, end: 20190123
  37. IRINOTECAN [Suspect]
     Active Substance: IRINOTECAN
     Dosage: ONCE
     Route: 065
     Dates: start: 20190905, end: 20190905
  38. CALCIUM FOLINATE [Suspect]
     Active Substance: LEUCOVORIN CALCIUM
     Dosage: ONCE
     Route: 065
     Dates: start: 20190905, end: 20190905
  39. ZALTRAP [Suspect]
     Active Substance: ZIV-AFLIBERCEPT
     Dosage: ONCE
     Route: 041
     Dates: start: 20190123, end: 20190123
  40. FLUOROURACIL. [Suspect]
     Active Substance: FLUOROURACIL
     Dosage: ONCE
     Route: 040
     Dates: start: 20190529, end: 20190529
  41. FLUOROURACIL. [Suspect]
     Active Substance: FLUOROURACIL
     Dosage: ONCE
     Route: 040
     Dates: start: 20190905, end: 20190905
  42. FLUOROURACIL. [Suspect]
     Active Substance: FLUOROURACIL
     Dosage: ONCE
     Route: 041
     Dates: start: 20190123, end: 20190123
  43. FLUOROURACIL. [Suspect]
     Active Substance: FLUOROURACIL
     Dosage: ONCE
     Route: 041
     Dates: start: 20190227, end: 20190227
  44. IRINOTECAN [Suspect]
     Active Substance: IRINOTECAN
     Dosage: ONCE
     Route: 065
     Dates: start: 20190227, end: 20190227
  45. CALCIUM FOLINATE [Suspect]
     Active Substance: LEUCOVORIN CALCIUM
     Dosage: ONCE
     Route: 065
     Dates: start: 20190123, end: 20190123
  46. CALCIUM FOLINATE [Suspect]
     Active Substance: LEUCOVORIN CALCIUM
     Dosage: ONCE
     Route: 065
     Dates: start: 20190704, end: 20190704
  47. CALCIUM FOLINATE [Suspect]
     Active Substance: LEUCOVORIN CALCIUM
     Route: 065
  48. ZALTRAP [Suspect]
     Active Substance: ZIV-AFLIBERCEPT
     Dosage: ONCE
     Route: 041
     Dates: start: 20190808, end: 20190808

REACTIONS (1)
  - Neutropenia [Recovered/Resolved]

NARRATIVE: CASE EVENT DATE: 20190410
